FAERS Safety Report 4758830-2 (Version None)
Quarter: 2005Q3

REPORT INFORMATION
  Report Type: 
  Country: None (occurrence: None)
  Receive Date: 20050901
  Receipt Date: 20050823
  Transmission Date: 20060218
  Serious: Yes (Hospitalization)
  Sender: FDA-Public Use
  Company Number: ES-BRISTOL-MYERS SQUIBB COMPANY-13087457

PATIENT
  Age: 65 Year
  Sex: Male
  Weight: 80 kg

DRUGS (5)
  1. CISPLATIN [Suspect]
     Indication: LUNG NEOPLASM MALIGNANT
     Dosage: GIVEN ON CYCLE DAY 1
     Route: 042
     Dates: start: 20050622
  2. GEMCITABINE HCL [Suspect]
     Indication: LUNG NEOPLASM MALIGNANT
     Route: 042
     Dates: start: 20050622
  3. INSULIN [Concomitant]
     Indication: DIABETES MELLITUS
  4. FERO-GRADUMET [Concomitant]
     Indication: ANAEMIA
     Dates: start: 20050706, end: 20050726
  5. EPOGEN [Concomitant]
     Indication: ANAEMIA
     Dates: start: 20050720

REACTIONS (2)
  - GASTROINTESTINAL TOXICITY [None]
  - NEPHROPATHY TOXIC [None]
